FAERS Safety Report 6993384-1 (Version None)
Quarter: 2010Q3

REPORT INFORMATION
  Report Type: 
  Country: None (occurrence: None)
  Receive Date: 20100917
  Receipt Date: 20100524
  Transmission Date: 20110219
  Serious: Yes (Hospitalization)
  Sender: FDA-Public Use
  Company Number: US-ASTRAZENECA-2010SE23549

PATIENT
  Age: 15 Year
  Sex: Female
  Weight: 54.4 kg

DRUGS (6)
  1. SEROQUEL [Suspect]
     Indication: ATTENTION DEFICIT/HYPERACTIVITY DISORDER
     Dosage: DAILY
     Route: 048
  2. SEROQUEL [Suspect]
     Indication: BIPOLAR DISORDER
     Dosage: DAILY
     Route: 048
  3. SEROQUEL [Suspect]
     Indication: ANGER
     Dosage: DAILY
     Route: 048
  4. SEROQUEL [Suspect]
     Dosage: DAILY
     Route: 048
     Dates: start: 20100201
  5. SEROQUEL [Suspect]
     Dosage: DAILY
     Route: 048
     Dates: start: 20100201
  6. SEROQUEL [Suspect]
     Dosage: DAILY
     Route: 048
     Dates: start: 20100201

REACTIONS (3)
  - AGGRESSION [None]
  - INCREASED APPETITE [None]
  - PSYCHOMOTOR HYPERACTIVITY [None]
